FAERS Safety Report 7911771-1 (Version None)
Quarter: 2011Q4

REPORT INFORMATION
  Report Type: 
  Country: None (occurrence: None)
  Receive Date: 20111114
  Receipt Date: 20111114
  Transmission Date: 20120403
  Serious: No
  Sender: FDA-Public Use
  Company Number: None

PATIENT
  Age: 27 Year
  Sex: Male
  Weight: 72.574 kg

DRUGS (1)
  1. ABILIFY [Suspect]
     Dosage: 5MG

REACTIONS (1)
  - CONVULSION [None]
